FAERS Safety Report 6718343-5 (Version None)
Quarter: 2010Q2

REPORT INFORMATION
  Report Type: 
  Country: None (occurrence: None)
  Receive Date: 20100504
  Receipt Date: 20100421
  Transmission Date: 20101027
  Serious: Yes (Hospitalization)
  Sender: FDA-Public Use
  Company Number: 2010PL000041

PATIENT
  Age: 57 Year
  Sex: Male

DRUGS (1)
  1. IMURAN [Suspect]
     Indication: COLITIS ULCERATIVE
     Dosage: 50 MG, QD;
     Dates: start: 20090923, end: 20091005

REACTIONS (5)
  - ATRIAL FIBRILLATION [None]
  - H1N1 INFLUENZA [None]
  - LIVER DISORDER [None]
  - MYOCARDIAL INFARCTION [None]
  - PNEUMONIA VIRAL [None]
